FAERS Safety Report 9175394 (Version 1)
Quarter: 2013Q1

REPORT INFORMATION
  Report Type: Report from Study
  Country: BR (occurrence: BR)
  Receive Date: 20130320
  Receipt Date: 20130320
  Transmission Date: 20140127
  Serious: Yes (Hospitalization)
  Sender: FDA-Public Use
  Company Number: BR-ROCHE-1203927

PATIENT
  Sex: Male
  Weight: 90 kg

DRUGS (4)
  1. PEGASYS [Suspect]
     Indication: HEPATITIS C
     Route: 065
     Dates: start: 2011
  2. PEGASYS [Suspect]
     Route: 065
     Dates: start: 2012
  3. COPEGUS [Suspect]
     Indication: HEPATITIS C
     Route: 065
     Dates: start: 2011
  4. COPEGUS [Suspect]
     Route: 065
     Dates: start: 2012

REACTIONS (2)
  - Haemorrhage [Unknown]
  - Thrombocytopenia [Unknown]
